FAERS Safety Report 9274793 (Version 2)
Quarter: 2013Q3

REPORT INFORMATION
  Report Type: Spontaneous
  Country: JP (occurrence: None)
  Receive Date: 20130429
  Receipt Date: 20130701
  Transmission Date: 20140515
  Serious: Yes (Hospitalization)
  Sender: FDA-Public Use
  Company Number: TCI2013A02279

PATIENT
  Age: 94 Year
  Sex: Female

DRUGS (11)
  1. ROZEREM [Suspect]
     Indication: INSOMNIA
     Route: 048
     Dates: start: 20130417, end: 20130418
  2. ATORVASTATIN EE (ATORVASTATIN CALCIUM) [Concomitant]
  3. BUIP-4 (PROPIVERINE HYDROCHLORIDE) [Concomitant]
  4. BROTIZOLAM [Concomitant]
  5. ONBALFA (ALFACALCIDOL) [Concomitant]
  6. ALLOZYM (ALLOPURINOL) [Concomitant]
  7. OMEPRAZON (OMEPRAZOLE) [Concomitant]
  8. MICARDIS (TELMISARTAN) [Concomitant]
  9. OPALMON (LIMAPROST) [Concomitant]
  10. MYSLEE (ZOLPIDEM TARTRATE) [Concomitant]
  11. AMOBAN (ZOPICLONE) [Concomitant]

REACTIONS (1)
  - Blood pressure decreased [None]
